FAERS Safety Report 6555515-7 (Version None)
Quarter: 2010Q1

REPORT INFORMATION
  Report Type: 
  Country: None (occurrence: None)
  Receive Date: 20100125
  Receipt Date: 20100108
  Transmission Date: 20100710
  Serious: Yes (Hospitalization)
  Sender: FDA-Public Use
  Company Number: 2010000123

PATIENT
  Age: 78 Year
  Sex: Male

DRUGS (1)
  1. TARCEVA [Suspect]
     Indication: NON-SMALL CELL LUNG CANCER STAGE IIIB
     Dosage: 100 MG, QD, ORAL
     Route: 048

REACTIONS (7)
  - COUGH [None]
  - FATIGUE [None]
  - PRURITUS [None]
  - RASH [None]
  - SKIN FISSURES [None]
  - URINARY BLADDER HAEMORRHAGE [None]
  - WEIGHT DECREASED [None]
